FAERS Safety Report 8503458-1 (Version None)
Quarter: 2012Q3

REPORT INFORMATION
  Report Type: 
  Country: None (occurrence: None)
  Receive Date: 20120711
  Receipt Date: 20120703
  Transmission Date: 20120928
  Serious: Yes (Death)
  Sender: FDA-Public Use
  Company Number: US-GLAXOSMITHKLINE-A0981714A

PATIENT
  Age: 56 Year
  Sex: Male
  Weight: 67.3 kg

DRUGS (5)
  1. LORTAB [Concomitant]
  2. PROCRIT [Concomitant]
     Dosage: 40000U SINGLE DOSE
     Dates: start: 20120525
  3. HYCAMTIN [Suspect]
     Indication: SMALL CELL LUNG CANCER STAGE UNSPECIFIED
     Dosage: 7.44MG WEEKLY
     Route: 042
     Dates: start: 20120518, end: 20120529
  4. XANAX [Concomitant]
  5. MORPHINE SULFATE [Concomitant]

REACTIONS (1)
  - SMALL CELL LUNG CANCER METASTATIC [None]
